FAERS Safety Report 12946712 (Version 2)
Quarter: 2016Q4

REPORT INFORMATION
  Report Type: Spontaneous
  Country: JP (occurrence: JP)
  Receive Date: 20161116
  Receipt Date: 20161129
  Transmission Date: 20170207
  Serious: Yes (Other)
  Sender: FDA-Public Use
  Company Number: PHJP2016JP032381

PATIENT
  Age: 43 Year
  Sex: Female
  Weight: 95.7 kg

DRUGS (4)
  1. METFORMIN [Suspect]
     Active Substance: METFORMIN HYDROCHLORIDE
     Indication: DIABETES MELLITUS
     Dosage: UNK
     Route: 048
  2. OCTREOTIDE. [Suspect]
     Active Substance: OCTREOTIDE
     Indication: MULTIPLE ENDOCRINE NEOPLASIA TYPE 1
     Dosage: 30 MG, UNK
     Route: 030
  3. DAPAGLIFLOZIN [Suspect]
     Active Substance: DAPAGLIFLOZIN
     Indication: DIABETES MELLITUS
     Dosage: UNK
     Route: 048
  4. LANSOPRAZOLE. [Concomitant]
     Active Substance: LANSOPRAZOLE
     Indication: PRODUCT USED FOR UNKNOWN INDICATION
     Dosage: UNK
     Route: 065

REACTIONS (4)
  - Weight loss poor [Unknown]
  - Neoplasm progression [Unknown]
  - Product use issue [Unknown]
  - Hypoglycaemia [Unknown]
